FAERS Safety Report 19184046 (Version 1)
Quarter: 2021Q2

REPORT INFORMATION
  Report Type: Spontaneous
  Country: CL (occurrence: CL)
  Receive Date: 20210427
  Receipt Date: 20210427
  Transmission Date: 20210717
  Serious: Yes (Death)
  Sender: FDA-Public Use
  Company Number: CL-CHEPLA-C20212133

PATIENT
  Sex: Male
  Weight: 3.41 kg

DRUGS (1)
  1. GANCICLOVIR. [Suspect]
     Active Substance: GANCICLOVIR
     Indication: CONGENITAL CYTOMEGALOVIRUS INFECTION

REACTIONS (2)
  - Neonatal multi-organ failure [Fatal]
  - Product use issue [Recovered/Resolved]
